FAERS Safety Report 23440949 (Version 1)
Quarter: 2024Q1

REPORT INFORMATION
  Report Type: Spontaneous
  Country: ES (occurrence: ES)
  Receive Date: 20240125
  Receipt Date: 20240125
  Transmission Date: 20240410
  Serious: Yes (Other)
  Sender: FDA-Public Use
  Company Number: None

PATIENT
  Age: 54 Year
  Sex: Female

DRUGS (3)
  1. TOCILIZUMAB [Suspect]
     Active Substance: TOCILIZUMAB
     Indication: Endocrine ophthalmopathy
     Route: 065
     Dates: start: 20230627, end: 20230627
  2. AZOPT [Concomitant]
     Active Substance: BRINZOLAMIDE
     Dosage: AZOPT 10 MG/ML SUSPENSION EYELASH, 1 BOTTLE OF 5 ML
     Dates: start: 20230613
  3. LEVOTHYROXINE SODIUM [Concomitant]
     Active Substance: LEVOTHYROXINE SODIUM
     Dosage: EUTIROX 137 MICROGRAMS TABLETS, 100 TABLETS
     Dates: start: 20200730

REACTIONS (1)
  - Hypertransaminasaemia [Recovering/Resolving]

NARRATIVE: CASE EVENT DATE: 20230721
